FAERS Safety Report 7012596-4 (Version None)
Quarter: 2010Q3

REPORT INFORMATION
  Report Type: 
  Country: None (occurrence: None)
  Receive Date: 20100924
  Receipt Date: 20100913
  Transmission Date: 20110219
  Serious: Yes (Other)
  Sender: FDA-Public Use
  Company Number: FI-SANOFI-AVENTIS-2010SA055338

PATIENT
  Age: 79 Year
  Sex: Male

DRUGS (5)
  1. SOLOSTAR [Suspect]
     Route: 058
  2. APIDRA SOLOSTAR [Suspect]
     Route: 058
  3. APIDRA SOLOSTAR [Suspect]
     Dosage: DOSE:76 UNIT(S)
     Route: 058
     Dates: start: 20100811, end: 20100811
  4. SOLOSTAR [Suspect]
     Route: 058
  5. LANTUS [Suspect]
     Dosage: DOSE:76 UNIT(S)
     Route: 058

REACTIONS (1)
  - WRONG DRUG ADMINISTERED [None]
